FAERS Safety Report 5396196-8 (Version None)
Quarter: 2007Q3

REPORT INFORMATION
  Report Type: 
  Country: None (occurrence: None)
  Receive Date: 20070725
  Receipt Date: 20070723
  Transmission Date: 20080115
  Serious: Yes (Death, Hospitalization)
  Sender: FDA-Public Use
  Company Number: PHBS2007AU12352

PATIENT
  Age: 79 Year
  Sex: Female

DRUGS (6)
  1. ASPIRIN [Concomitant]
  2. METHYLDOPA [Concomitant]
  3. PINDOLOL [Concomitant]
  4. TEMAZEPAM [Concomitant]
  5. IRBESARTAN [Concomitant]
  6. TERBINAFINE HCL [Suspect]
     Dosage: 250 MG, QD
     Route: 048

REACTIONS (3)
  - AGRANULOCYTOSIS [None]
  - NEUTROPENIA [None]
  - SEPTIC SHOCK [None]
